FAERS Safety Report 24036809 (Version 2)
Quarter: 2024Q4

REPORT INFORMATION
  Report Type: Report from Study
  Country: CA (occurrence: CA)
  Receive Date: 20240701
  Receipt Date: 20241115
  Transmission Date: 20250115
  Serious: Yes (Other)
  Sender: SANDOZ
  Company Number: CA-002147023-NVSC2023CA145244

PATIENT
  Sex: Male

DRUGS (2)
  1. ERELZI [Suspect]
     Active Substance: ETANERCEPT-SZZS
     Indication: Rheumatoid arthritis
     Dosage: 50 MG, QW
     Route: 058
     Dates: start: 20221019
  2. ERELZI [Suspect]
     Active Substance: ETANERCEPT-SZZS
     Dosage: 50 MG, BIW
     Route: 058

REACTIONS (9)
  - Metastases to pelvis [Unknown]
  - Bladder cancer [Unknown]
  - Movement disorder [Unknown]
  - Gait disturbance [Unknown]
  - Decreased activity [Unknown]
  - Movement disorder [Unknown]
  - Musculoskeletal chest pain [Unknown]
  - Loss of personal independence in daily activities [Unknown]
  - Off label use [Unknown]
